FAERS Safety Report 7656039-6 (Version None)
Quarter: 2011Q3

REPORT INFORMATION
  Report Type: 
  Country: None (occurrence: None)
  Receive Date: 20110804
  Receipt Date: 20110729
  Transmission Date: 20111222
  Serious: Yes (Death)
  Sender: FDA-Public Use
  Company Number: US-ELI_LILLY_AND_COMPANY-US201107004030

PATIENT
  Sex: Male
  Weight: 62.132 kg

DRUGS (2)
  1. VITAMIN B-12 [Concomitant]
     Dosage: 1000 UG, UNK
     Dates: start: 20100708
  2. ALIMTA [Suspect]
     Dosage: 900 MG, EVERY 21 DAYS
     Dates: start: 20100716, end: 20101201

REACTIONS (1)
  - LUNG CANCER METASTATIC [None]
